FAERS Safety Report 20648323 (Version 1)
Quarter: 2022Q1

REPORT INFORMATION
  Report Type: Spontaneous
  Country: US (occurrence: None)
  Receive Date: 20220328
  Receipt Date: 20220328
  Transmission Date: 20220424
  Serious: Yes (Hospitalization)
  Sender: FDA-Public Use
  Company Number: None

PATIENT
  Age: 42 Year
  Sex: Female
  Weight: 74.25 kg

DRUGS (4)
  1. EMGALITY [Suspect]
     Active Substance: GALCANEZUMAB-GNLM
     Indication: Migraine
     Route: 061
     Dates: start: 20220319, end: 20220319
  2. LISINOPRIL [Concomitant]
     Active Substance: LISINOPRIL
  3. IMITREX [Concomitant]
     Active Substance: SUMATRIPTAN SUCCINATE
  4. TYLENOL [Concomitant]
     Active Substance: ACETAMINOPHEN

REACTIONS (5)
  - Adverse drug reaction [None]
  - Chest pain [None]
  - Chest discomfort [None]
  - Chest discomfort [None]
  - Tachycardia [None]

NARRATIVE: CASE EVENT DATE: 20220324
